FAERS Safety Report 14263992 (Version 1)
Quarter: 2017Q4

REPORT INFORMATION
  Report Type: Spontaneous
  Country: RU (occurrence: RU)
  Receive Date: 20171208
  Receipt Date: 20171208
  Transmission Date: 20180321
  Serious: Yes (Hospitalization)
  Sender: FDA-Public Use
  Company Number: RU-ASTRAZENECA-2017SF24100

PATIENT
  Age: 50 Year
  Sex: Male
  Weight: 70 kg

DRUGS (4)
  1. BRILINTA [Suspect]
     Active Substance: TICAGRELOR
     Indication: MYOCARDIAL INFARCTION
     Route: 048
     Dates: start: 20171031
  2. THROMBO ASS [Concomitant]
     Active Substance: ASPIRIN
     Dates: start: 20171127
  3. CONCOR [Concomitant]
     Active Substance: BISOPROLOL FUMARATE
     Dates: start: 20171127
  4. ATORVASTATIN [Concomitant]
     Active Substance: ATORVASTATIN
     Dates: start: 20171127

REACTIONS (2)
  - Condition aggravated [Not Recovered/Not Resolved]
  - Prostatitis [Not Recovered/Not Resolved]

NARRATIVE: CASE EVENT DATE: 20171127
